FAERS Safety Report 6642094-9 (Version None)
Quarter: 2010Q1

REPORT INFORMATION
  Report Type: 
  Country: None (occurrence: None)
  Receive Date: 20100316
  Receipt Date: 20100308
  Transmission Date: 20100710
  Serious: Yes (Hospitalization, Other)
  Sender: FDA-Public Use
  Company Number: TRP_06423_2009

PATIENT
  Sex: Male

DRUGS (3)
  1. RIBASPHERE [Suspect]
     Indication: HEPATITIS C
     Dosage: ORAL
     Route: 048
     Dates: start: 20090808
  2. PEG-INTRON [Suspect]
     Indication: HEPATITIS C
     Dosage: SUBCUTANEOUS
     Route: 058
     Dates: start: 20090807
  3. DILTIAZEM HCL [Concomitant]

REACTIONS (21)
  - ABDOMINAL PAIN [None]
  - ARTHRITIS [None]
  - BURNING SENSATION [None]
  - CONDITION AGGRAVATED [None]
  - DEFAECATION URGENCY [None]
  - DEPRESSION [None]
  - DYSPNOEA [None]
  - FATIGUE [None]
  - GASTROINTESTINAL INFLAMMATION [None]
  - HEPATIC CIRRHOSIS [None]
  - HEPATIC LESION [None]
  - HEPATIC STEATOSIS [None]
  - HYPERSOMNIA [None]
  - IMMUNE SYSTEM DISORDER [None]
  - INJECTION SITE ERYTHEMA [None]
  - INJECTION SITE PAIN [None]
  - INJECTION SITE RASH [None]
  - INTERVERTEBRAL DISC DISORDER [None]
  - LOCALISED INTRAABDOMINAL FLUID COLLECTION [None]
  - MYALGIA [None]
  - VARICELLA [None]
